FAERS Safety Report 8766162 (Version 2)
Quarter: 2018Q3

REPORT INFORMATION
  Report Type: Spontaneous
  Country: FR (occurrence: FR)
  Receive Date: 20120904
  Receipt Date: 20180920
  Transmission Date: 20181010
  Serious: Yes (Life-Threatening, Hospitalization)
  Sender: FDA-Public Use
  Company Number: FR-ASTRAZENECA-2012SE65545

PATIENT
  Age: 28055 Day
  Sex: Female

DRUGS (20)
  1. INEXIUM [Suspect]
     Active Substance: ESOMEPRAZOLE
     Indication: PRODUCT USED FOR UNKNOWN INDICATION
     Route: 048
     Dates: start: 20120728, end: 20120814
  2. HEPARIN [Concomitant]
     Active Substance: HEPARIN SODIUM
  3. INSULIN [Concomitant]
     Active Substance: INSULIN NOS
  4. CACIT D3 [Concomitant]
     Active Substance: CALCIUM\CHOLECALCIFEROL
  5. CERIS [Concomitant]
     Active Substance: TROSPIUM CHLORIDE
  6. NORSET [Suspect]
     Active Substance: MIRTAZAPINE
     Indication: PRODUCT USED FOR UNKNOWN INDICATION
     Route: 048
     Dates: start: 20120803, end: 20120817
  7. LOXEN [Concomitant]
     Indication: HYPERTENSION
     Route: 048
     Dates: start: 201208
  8. INEXIUM IV [Suspect]
     Active Substance: ESOMEPRAZOLE
     Route: 042
     Dates: end: 20120730
  9. CLAFORAN [Suspect]
     Active Substance: CEFOTAXIME SODIUM
     Indication: PNEUMOCOCCAL SEPSIS
     Route: 042
     Dates: start: 20120729, end: 20120815
  10. ROVAMYCINE [Concomitant]
     Active Substance: SPIRAMYCIN
     Indication: PNEUMOCOCCAL SEPSIS
     Dates: start: 20120729, end: 20120815
  11. CORDARONE [Concomitant]
     Active Substance: AMIODARONE HYDROCHLORIDE
     Indication: ATRIAL FIBRILLATION
     Route: 048
  12. XANAX [Concomitant]
     Active Substance: ALPRAZOLAM
     Route: 048
  13. PARACETAMOL [Concomitant]
     Active Substance: ACETAMINOPHEN
  14. ESIDREX [Concomitant]
     Active Substance: HYDROCHLOROTHIAZIDE
  15. COUMADINE [Concomitant]
     Active Substance: WARFARIN SODIUM
  16. CORTANCYL [Concomitant]
     Active Substance: PREDNISONE
     Route: 048
  17. KALEORID [Concomitant]
     Active Substance: POTASSIUM CHLORIDE
  18. ALDACTONE [Suspect]
     Active Substance: SPIRONOLACTONE
     Indication: PRODUCT USED FOR UNKNOWN INDICATION
     Route: 048
     Dates: start: 20120803, end: 20120814
  19. HYPERIUM [Concomitant]
     Active Substance: RILMENIDINE PHOSPHATE
  20. FOSAMAX [Concomitant]
     Active Substance: ALENDRONATE SODIUM

REACTIONS (4)
  - Pneumonia pneumococcal [Recovered/Resolved]
  - Septic shock [Recovered/Resolved]
  - Agranulocytosis [Recovered/Resolved]
  - Meningitis pneumococcal [Recovered/Resolved]

NARRATIVE: CASE EVENT DATE: 20120721
